FAERS Safety Report 8578845-6 (Version None)
Quarter: 2012Q3

REPORT INFORMATION
  Report Type: 
  Country: None (occurrence: None)
  Receive Date: 20120808
  Receipt Date: 20120802
  Transmission Date: 20120928
  Serious: Yes (Other)
  Sender: FDA-Public Use
  Company Number: PHHY2012BR046500

PATIENT
  Age: 82 Year
  Sex: Female

DRUGS (5)
  1. ZOLEDRONOC ACID [Suspect]
     Indication: TRAUMATIC FRACTURE
     Dosage: 5MG/100ML, YEARLY
     Route: 042
     Dates: start: 20110601
  2. CALCIUM [Concomitant]
     Indication: TRAUMATIC FRACTURE
     Dates: start: 20110401, end: 20120401
  3. VITAMIN D [Concomitant]
     Indication: TRAUMATIC FRACTURE
     Dates: start: 20110401, end: 20120401
  4. ACETAMINOPHEN [Concomitant]
     Dosage: 1500/DAY
  5. ZOLEDRONOC ACID [Suspect]
     Dosage: 5 MG, YEARLY
     Route: 042
     Dates: start: 20120601

REACTIONS (4)
  - ARTHRITIS [None]
  - UPPER LIMB FRACTURE [None]
  - CEREBROVASCULAR ACCIDENT [None]
  - BONE DENSITY DECREASED [None]
